FAERS Safety Report 7752491-6 (Version None)
Quarter: 2011Q3

REPORT INFORMATION
  Report Type: 
  Country: None (occurrence: None)
  Receive Date: 20110915
  Receipt Date: 20110906
  Transmission Date: 20111222
  Serious: Yes (Other)
  Sender: FDA-Public Use
  Company Number: JP-UCBSA-029784

PATIENT
  Age: 23 Year
  Sex: Female

DRUGS (5)
  1. ZOLPIDEM [Concomitant]
     Route: 048
     Dates: start: 20081231
  2. DEPAKENE [Concomitant]
     Route: 048
     Dates: start: 20081231
  3. KEPPRA [Suspect]
     Indication: PARTIAL SEIZURES
     Route: 048
     Dates: start: 20101007, end: 20110309
  4. RISPERDAL [Concomitant]
     Route: 048
     Dates: start: 20081231
  5. KEPPRA [Suspect]
     Route: 048
     Dates: start: 20110310

REACTIONS (2)
  - PREGNANCY [None]
  - STILLBIRTH [None]
